FAERS Safety Report 6717351-8 (Version None)
Quarter: 2010Q2

REPORT INFORMATION
  Report Type: 
  Country: None (occurrence: None)
  Receive Date: 20100510
  Receipt Date: 20100430
  Transmission Date: 20101027
  Serious: Yes (Death, Life-Threatening)
  Sender: FDA-Public Use
  Company Number: BR-ABBOTT-02P-020-0197663-00

PATIENT
  Age: 7 Year
  Sex: Male

DRUGS (3)
  1. VALPROIC ACID [Suspect]
     Indication: EPILEPSY
     Dates: start: 20000101, end: 20000319
  2. CARBAMAZEPINE [Concomitant]
     Indication: EPILEPSY
     Dates: start: 20000101
  3. PHENOBARBITAL [Concomitant]
     Indication: EPILEPSY
     Dates: start: 20000101

REACTIONS (8)
  - BRADYCARDIA [None]
  - CARDIO-RESPIRATORY ARREST [None]
  - HAEMATOMA [None]
  - HYPOVOLAEMIC SHOCK [None]
  - METABOLIC ACIDOSIS [None]
  - PANCREATITIS NECROTISING [None]
  - PERITONEAL HAEMORRHAGE [None]
  - UPPER GASTROINTESTINAL HAEMORRHAGE [None]
